FAERS Safety Report 7608988-2 (Version None)
Quarter: 2011Q3

REPORT INFORMATION
  Report Type: 
  Country: None (occurrence: None)
  Receive Date: 20110713
  Receipt Date: 20110713
  Transmission Date: 20111222
  Serious: Yes (Hospitalization)
  Sender: FDA-Public Use
  Company Number: None

PATIENT
  Sex: Female
  Weight: 98.3 kg

DRUGS (2)
  1. CISPLATIN [Suspect]
     Dosage: 100MG
  2. PEMETREXED [Suspect]
     Dosage: 1000 MG

REACTIONS (9)
  - BLOOD ALKALINE PHOSPHATASE INCREASED [None]
  - ENTEROCOCCUS TEST POSITIVE [None]
  - BLOOD LACTATE DEHYDROGENASE INCREASED [None]
  - CULTURE URINE POSITIVE [None]
  - PSEUDOMONAS TEST POSITIVE [None]
  - ANURIA [None]
  - ANAEMIA [None]
  - FLANK PAIN [None]
  - PYREXIA [None]
